FAERS Safety Report 7655613-0 (Version None)
Quarter: 2011Q3

REPORT INFORMATION
  Report Type: 
  Country: None (occurrence: None)
  Receive Date: 20110804
  Receipt Date: 20110801
  Transmission Date: 20111222
  Serious: Yes (Other)
  Sender: FDA-Public Use
  Company Number: US-TEVA-290542USA

PATIENT
  Sex: Male

DRUGS (2)
  1. CLARAVIS [Suspect]
     Dosage: ALTERNATING 1 PER DAY/TWO PER DAY
  2. CLARAVIS [Suspect]
     Dosage: 80 MILLIGRAM; ALTERNATING

REACTIONS (2)
  - DEPRESSION [None]
  - SUICIDE ATTEMPT [None]
